FAERS Safety Report 21557745 (Version 1)
Quarter: 2022Q4

REPORT INFORMATION
  Report Type: Spontaneous
  Country: IL (occurrence: IL)
  Receive Date: 20221106
  Receipt Date: 20221106
  Transmission Date: 20230112
  Serious: No
  Sender: FDA-Public Use
  Company Number: IL-PADAGIS-2022PAD00835

PATIENT

DRUGS (3)
  1. IMIQUIMOD [Suspect]
     Active Substance: IMIQUIMOD
     Indication: Angiolymphoid hyperplasia with eosinophilia
     Dosage: UNK
     Route: 061
  2. CLOBETASOL PROPIONATE [Concomitant]
     Active Substance: CLOBETASOL PROPIONATE
     Indication: Angiolymphoid hyperplasia with eosinophilia
     Dosage: UNK
     Route: 061
  3. RAPAMYCIN [Concomitant]
     Active Substance: SIROLIMUS
     Indication: Angiolymphoid hyperplasia with eosinophilia
     Dosage: UNK
     Route: 061

REACTIONS (1)
  - Drug ineffective for unapproved indication [Unknown]
